FAERS Safety Report 8660743 (Version 2)
Quarter: 2013Q4

REPORT INFORMATION
  Report Type: Report from Study
  Country: GB (occurrence: BR)
  Receive Date: 20120711
  Receipt Date: 20131105
  Transmission Date: 20140711
  Serious: Yes (Hospitalization)
  Sender: FDA-Public Use
  Company Number: GB-009507513-1206USA05584

PATIENT
  Age: 46 Year
  Sex: Female

DRUGS (4)
  1. ISENTRESS [Suspect]
     Indication: HIV INFECTION
     Dosage: 400 MG, BID
     Route: 048
     Dates: start: 20120228, end: 20120606
  2. ISENTRESS [Suspect]
     Dosage: 400 MG, BID
     Route: 048
     Dates: start: 20120611
  3. ABACAVIR SULFATE [Concomitant]
     Dates: start: 20120430, end: 20120607
  4. KALETRA [Concomitant]
     Dates: start: 20120430, end: 20120607

REACTIONS (3)
  - Pancreatitis acute [Not Recovered/Not Resolved]
  - Hepatitis [Recovered/Resolved]
  - Vomiting [Unknown]
